FAERS Safety Report 9457788 (Version 1)
Quarter: 2013Q3

REPORT INFORMATION
  Report Type: Spontaneous
  Country: US (occurrence: None)
  Receive Date: 20130812
  Receipt Date: 20130812
  Transmission Date: 20140515
  Serious: No
  Sender: FDA-Public Use
  Company Number: None

PATIENT
  Age: 20 Year
  Sex: Female

DRUGS (4)
  1. GEODON [Suspect]
     Indication: MAJOR DEPRESSION
     Route: 048
     Dates: start: 201305, end: 201308
  2. GEODON [Suspect]
     Indication: BORDERLINE PERSONALITY DISORDER
     Route: 048
     Dates: start: 201305, end: 201308
  3. CYMBALTA [Concomitant]
  4. ADDERALL [Concomitant]

REACTIONS (7)
  - Paraesthesia [None]
  - Hyperhidrosis [None]
  - Muscle twitching [None]
  - Dizziness [None]
  - Dyspnoea [None]
  - Piloerection [None]
  - Feeling hot [None]
